FAERS Safety Report 7727364-5 (Version None)
Quarter: 2011Q3

REPORT INFORMATION
  Report Type: 
  Country: None (occurrence: None)
  Receive Date: 20110902
  Receipt Date: 20110829
  Transmission Date: 20111222
  Serious: Yes (Death, Other)
  Sender: FDA-Public Use
  Company Number: PHHY2011NO76822

PATIENT
  Sex: Female

DRUGS (7)
  1. MORPHINE [Suspect]
     Indication: DECUBITUS ULCER
     Dosage: 3 UG, (SEVERAL TIMES A DAY)
     Route: 051
     Dates: start: 20110724
  2. TRAMADOL HYDROCHLORIDE [Suspect]
     Route: 048
     Dates: start: 20110324, end: 20110724
  3. FENTANYL [Concomitant]
     Dosage: UNK
     Dates: start: 20110703
  4. TRAMADOL HYDROCHLORIDE [Suspect]
     Indication: BACK PAIN
     Route: 048
     Dates: start: 20110216, end: 20110301
  5. BUPRENORPHINE [Suspect]
     Indication: DECUBITUS ULCER
     Route: 062
     Dates: start: 20110324, end: 20110514
  6. PANTOPRAZOLE [Concomitant]
  7. FENTANYL [Concomitant]
     Indication: DECUBITUS ULCER
     Dosage: UNK
     Dates: start: 20110514, end: 20110630

REACTIONS (11)
  - RESPIRATORY ARREST [None]
  - TRISMUS [None]
  - SPEECH DISORDER [None]
  - TONGUE DISORDER [None]
  - SEDATION [None]
  - MOVEMENT DISORDER [None]
  - DYSPHAGIA [None]
  - MUSCULAR WEAKNESS [None]
  - MUSCLE RIGIDITY [None]
  - DYSPNOEA [None]
  - AGITATION [None]
